FAERS Safety Report 15930893 (Version 1)
Quarter: 2019Q1

REPORT INFORMATION
  Report Type: Spontaneous
  Country: US (occurrence: US)
  Receive Date: 20190207
  Receipt Date: 20190207
  Transmission Date: 20190417
  Serious: No
  Sender: FDA-Public Use
  Company Number: US-GLAXOSMITHKLINE-US2019017804

PATIENT
  Age: 74 Year
  Sex: Female

DRUGS (1)
  1. DICLOFENAC SODIUM GEL [Suspect]
     Active Substance: DICLOFENAC SODIUM
     Indication: DRY SKIN
     Dosage: UNK
     Route: 061
     Dates: end: 20190116

REACTIONS (3)
  - Off label use [Unknown]
  - Application site pain [Recovered/Resolved]
  - Product use in unapproved indication [Unknown]
